FAERS Safety Report 23235531 (Version 6)
Quarter: 2024Q1

REPORT INFORMATION
  Report Type: Spontaneous
  Country: US (occurrence: US)
  Receive Date: 20231128
  Receipt Date: 20240122
  Transmission Date: 20240410
  Serious: No
  Sender: FDA-Public Use
  Company Number: US-PFIZER INC-2019399844

PATIENT
  Age: 62 Year
  Sex: Female

DRUGS (1)
  1. PREMARIN [Suspect]
     Active Substance: ESTROGENS, CONJUGATED
     Dosage: 1 GM VAG QPM (ONCE A DAY IN THE EVENING)
     Route: 067

REACTIONS (3)
  - Sinus disorder [Unknown]
  - Dysphonia [Unknown]
  - Product prescribing error [Unknown]
